FAERS Safety Report 10102444 (Version 1)
Quarter: 2014Q2

REPORT INFORMATION
  Report Type: Spontaneous
  Country: KR (occurrence: None)
  Receive Date: 20140422
  Receipt Date: 20140422
  Transmission Date: 20141212
  Serious: Yes (Hospitalization)
  Sender: FDA-Public Use
  Company Number: 2014P1003089

PATIENT
  Age: 75 Year
  Sex: Female

DRUGS (1)
  1. AMIODARONE [Suspect]
     Indication: ATRIAL FIBRILLATION

REACTIONS (6)
  - Nausea [None]
  - Vomiting [None]
  - Haemochromatosis [None]
  - Haemosiderosis [None]
  - Toxicity to various agents [None]
  - Tremor [None]
